FAERS Safety Report 24095414 (Version 2)
Quarter: 2024Q3

REPORT INFORMATION
  Report Type: Spontaneous
  Country: RU (occurrence: RU)
  Receive Date: 20240716
  Receipt Date: 20240805
  Transmission Date: 20241017
  Serious: Yes (Other)
  Sender: SANOFI AVENTIS
  Company Number: RU-SA-SAC20240711000131

PATIENT
  Age: 32 Year
  Sex: Male

DRUGS (3)
  1. DUPILUMAB [Suspect]
     Active Substance: DUPILUMAB
     Indication: Dermatitis atopic
     Dosage: 600 MG, 1X
     Route: 058
     Dates: start: 20230906, end: 20230906
  2. DEXAMETHASONE [Concomitant]
     Active Substance: DEXAMETHASONE
     Indication: Corneal degeneration
     Dosage: 2 ML 1 DROP EACH. 4 TIMES A DAY FOR 30 DAYS
     Dates: start: 202309
  3. CYCLOSPORINE [Concomitant]
     Active Substance: CYCLOSPORINE
     Indication: Corneal degeneration
     Dosage: 0.4 ML 1 DROP 2 TIMES A DAY FOR 6 MONTHS
     Dates: start: 202309

REACTIONS (3)
  - Posterior capsule opacification [Unknown]
  - Visual impairment [Recovered/Resolved]
  - Keratitis [Unknown]

NARRATIVE: CASE EVENT DATE: 20230901
